FAERS Safety Report 15562168 (Version 2)
Quarter: 2018Q4

REPORT INFORMATION
  Report Type: Spontaneous
  Country: JP (occurrence: JP)
  Receive Date: 20181029
  Receipt Date: 20181119
  Transmission Date: 20190205
  Serious: Yes (Hospitalization)
  Sender: FDA-Public Use
  Company Number: PHJP2018JP017336

PATIENT
  Age: 79 Year
  Sex: Male

DRUGS (4)
  1. YOKUKANSAN [Concomitant]
     Active Substance: HERBALS
     Indication: PRODUCT USED FOR UNKNOWN INDICATION
     Dosage: 25 MG, UNK
     Route: 048
  2. MUCODYNE [Concomitant]
     Active Substance: CARBOCYSTEINE
     Indication: PRODUCT USED FOR UNKNOWN INDICATION
     Dosage: 500 MG, UNK
     Route: 048
  3. MAGNESIUM [Concomitant]
     Active Substance: MAGNESIUM
     Indication: PRODUCT USED FOR UNKNOWN INDICATION
     Dosage: 250 MG, UNK
     Route: 048
  4. EXELON PATCH [Suspect]
     Active Substance: RIVASTIGMINE
     Indication: DEMENTIA ALZHEIMER^S TYPE
     Dosage: 9.5 MG, QD (PATCH 10 CM2, 18 MG RIVASTIGMINE BASE)
     Route: 062

REACTIONS (2)
  - Concomitant disease progression [Recovered/Resolved]
  - Cholelithiasis [Recovered/Resolved]
